FAERS Safety Report 4607262-6 (Version None)
Quarter: 2005Q1

REPORT INFORMATION
  Report Type: 
  Country: None (occurrence: None)
  Receive Date: 20050309
  Receipt Date: 20050222
  Transmission Date: 20050727
  Serious: Yes (Life-Threatening, Hospitalization)
  Sender: FDA-Public Use
  Company Number: DE_041214976

PATIENT
  Sex: Female
  Weight: 74 kg

DRUGS (7)
  1. GEMZAR [Suspect]
     Indication: BLADDER CANCER
     Dosage: 1000 MG/M2
     Dates: start: 20040805, end: 20041201
  2. CISPLATIN [Concomitant]
  3. ZOFRAN [Concomitant]
  4. EMEND [Concomitant]
  5. DEXAMETHASONE [Concomitant]
  6. EPOETIN NOS [Concomitant]
  7. CORTICOSTEROIDS NOS [Concomitant]

REACTIONS (25)
  - ANAEMIA [None]
  - BACTERIA URINE [None]
  - BLOOD ELECTROLYTES DECREASED [None]
  - CHOLECYSTITIS [None]
  - CONVULSION [None]
  - DEEP VEIN THROMBOSIS [None]
  - DRUG TOXICITY [None]
  - ENTEROCOCCAL INFECTION [None]
  - ESCHERICHIA INFECTION [None]
  - FIBROSIS [None]
  - GENERALISED OEDEMA [None]
  - GENITAL INFECTION FEMALE [None]
  - HAEMORRHAGE [None]
  - HEPATIC FAILURE [None]
  - HEPATIC STEATOSIS [None]
  - HEPATITIS C [None]
  - HEPATOTOXICITY [None]
  - LOSS OF CONSCIOUSNESS [None]
  - PANCYTOPENIA [None]
  - PSEUDOMONAS INFECTION [None]
  - RENAL FAILURE [None]
  - RETICULOCYTE COUNT INCREASED [None]
  - THROMBOCYTOPENIA [None]
  - URINARY TRACT INFECTION [None]
  - ZIEVE SYNDROME [None]
